FAERS Safety Report 8368061-5 (Version None)
Quarter: 2012Q2

REPORT INFORMATION
  Report Type: 
  Country: None (occurrence: None)
  Receive Date: 20120517
  Receipt Date: 20120229
  Transmission Date: 20120825
  Serious: Yes (Death, Hospitalization)
  Sender: FDA-Public Use
  Company Number: PHHY2012CL007794

PATIENT
  Sex: Female
  Weight: 50.4 kg

DRUGS (4)
  1. GLEEVEC [Suspect]
     Indication: CHRONIC MYELOID LEUKAEMIA
     Dosage: 600 MG, ONCE A DAY
     Route: 048
     Dates: start: 20110719, end: 20120109
  2. CYTARABINE [Concomitant]
     Dosage: 3 G, UNK
  3. VINCRISTINE [Concomitant]
     Dosage: 2 MG, UNK
  4. DEXAMETHASONE [Concomitant]
     Dosage: 30 MG, UNK

REACTIONS (5)
  - FEBRILE NEUTROPENIA [None]
  - DYSPNOEA [None]
  - ACUTE RESPIRATORY FAILURE [None]
  - SEPSIS [None]
  - PNEUMONIA [None]
